FAERS Safety Report 5500363-X (Version None)
Quarter: 2007Q4

REPORT INFORMATION
  Report Type: 
  Country: None (occurrence: None)
  Receive Date: 20071025
  Receipt Date: 20071025
  Transmission Date: 20080405
  Serious: No
  Sender: FDA-Public Use
  Company Number: None

PATIENT

DRUGS (2)
  1. OMNICEF [Suspect]
     Indication: INFECTION
     Dosage: 300MG QD-BID PO
     Route: 048
  2. CEFDINIR [Suspect]
     Indication: INFECTION
     Dosage: 300MG QD-BID PO
     Route: 048

REACTIONS (2)
  - MEDICATION ERROR [None]
  - PHARMACEUTICAL PRODUCT COMPLAINT [None]
